FAERS Safety Report 6379191-1 (Version None)
Quarter: 2009Q3

REPORT INFORMATION
  Report Type: 
  Country: None (occurrence: None)
  Receive Date: 20090928
  Receipt Date: 20090916
  Transmission Date: 20100115
  Serious: Yes (Hospitalization)
  Sender: FDA-Public Use
  Company Number: JP-ROCHE-585029

PATIENT
  Age: 55 Year
  Sex: Female

DRUGS (6)
  1. XELODA [Suspect]
     Indication: BREAST CANCER METASTATIC
     Dosage: DRUG: XELODA 300
     Route: 048
  2. OPIOID ANALGESIC NOS [Concomitant]
     Indication: CANCER PAIN
  3. NON-STEROIDAL ANTI-INFLAMMATORIES [Concomitant]
     Indication: CANCER PAIN
  4. NARCOTICS [Concomitant]
     Route: 058
  5. DUROTEP [Concomitant]
     Indication: CANCER PAIN
     Dosage: FORM: TAPE
     Route: 062
  6. MORPHINE HYDROCHLORIDE [Concomitant]
     Dosage: FORM: PREPENON
     Route: 058

REACTIONS (1)
  - DIARRHOEA [None]
